FAERS Safety Report 5609206-7 (Version None)
Quarter: 2008Q1

REPORT INFORMATION
  Report Type: 
  Country: None (occurrence: None)
  Receive Date: 20080130
  Receipt Date: 20080130
  Transmission Date: 20080703
  Serious: No
  Sender: FDA-Public Use
  Company Number: None

PATIENT
  Age: 77 Year
  Sex: Male
  Weight: 68.5 kg

DRUGS (1)
  1. VARENICLINE [Suspect]
     Indication: SMOKING CESSATION THERAPY
     Dosage: AS DIRECTED UD PO
     Route: 048
     Dates: start: 20071203, end: 20071217

REACTIONS (2)
  - NERVOUSNESS [None]
  - PRURITUS [None]
